FAERS Safety Report 9274876 (Version 2)
Quarter: 2013Q4

REPORT INFORMATION
  Report Type: Spontaneous
  Country: US (occurrence: US)
  Receive Date: 20130507
  Receipt Date: 20131226
  Transmission Date: 20140711
  Serious: Yes (Hospitalization)
  Sender: FDA-Public Use
  Company Number: US-BAYER-2013-054840

PATIENT
  Age: 27 Year
  Sex: Female
  Weight: 156.46 kg

DRUGS (8)
  1. OCELLA [Suspect]
     Dosage: UNK
     Dates: start: 20120928, end: 20121025
  2. OMEPRAZOLE [Concomitant]
     Dosage: UNK UNK, PRN
     Dates: start: 20120831
  3. PROMETHAZINE HYDROCHLORIDE [Concomitant]
     Indication: NAUSEA
     Dosage: 25 MG, PRN EVERY 6 HOURS
  4. CIPROFLOXACIN HCL [Concomitant]
     Dosage: 500 MG, BID FOR 3 DAYS
  5. CLARITIN [Concomitant]
     Dosage: 10 MG, DAILY
     Dates: start: 20121027
  6. ALBUTEROL [Concomitant]
     Dosage: UNK UNK, PRN
     Dates: start: 20121027
  7. GABAPENTIN [Concomitant]
  8. OXYCODONE [Concomitant]

REACTIONS (5)
  - Intracranial venous sinus thrombosis [None]
  - Injury [None]
  - Emotional distress [None]
  - Intracranial venous sinus thrombosis [None]
  - Jugular vein thrombosis [None]
